FAERS Safety Report 7405687-7 (Version None)
Quarter: 2011Q2

REPORT INFORMATION
  Report Type: 
  Country: None (occurrence: None)
  Receive Date: 20110406
  Receipt Date: 20110406
  Transmission Date: 20111010
  Serious: No
  Sender: FDA-Public Use
  Company Number: None

PATIENT
  Sex: Female
  Weight: 86.4 kg

DRUGS (1)
  1. NADOLOL [Suspect]
     Indication: MIGRAINE
     Dosage: 20MG TWICE DAILY TABLET
     Dates: start: 20110112

REACTIONS (1)
  - FLATULENCE [None]
